FAERS Safety Report 21438012 (Version 2)
Quarter: 2023Q1

REPORT INFORMATION
  Report Type: Spontaneous
  Country: US (occurrence: US)
  Receive Date: 20221011
  Receipt Date: 20230127
  Transmission Date: 20230417
  Serious: Yes (Hospitalization, Other)
  Sender: FDA-Public Use
  Company Number: US-UNITED THERAPEUTICS-UNT-2022-019987

PATIENT
  Sex: Male
  Weight: 88.889 kg

DRUGS (11)
  1. TYVASO [Suspect]
     Active Substance: TREPROSTINIL
     Indication: Pulmonary arterial hypertension
     Dosage: UNK
     Dates: start: 20220706
  2. TYVASO [Suspect]
     Active Substance: TREPROSTINIL
     Dosage: 36 ?G, QID
     Dates: start: 2022
  3. TYVASO [Suspect]
     Active Substance: TREPROSTINIL
     Dosage: UNK
     Dates: start: 2022
  4. TYVASO [Suspect]
     Active Substance: TREPROSTINIL
     Dosage: UNK
     Dates: start: 2022
  5. TYVASO [Suspect]
     Active Substance: TREPROSTINIL
     Dosage: UNK
     Dates: start: 2022
  6. TYVASO [Suspect]
     Active Substance: TREPROSTINIL
     Dosage: UNK
     Dates: start: 2022
  7. TYVASO [Suspect]
     Active Substance: TREPROSTINIL
     Dosage: 48 ?G
  8. TYVASO [Suspect]
     Active Substance: TREPROSTINIL
     Dosage: 36 ?G, QID
  9. ADEMPAS [Suspect]
     Active Substance: RIOCIGUAT
     Indication: Product used for unknown indication
     Dosage: UNK
     Route: 065
     Dates: start: 2022
  10. OPSUMIT [Suspect]
     Active Substance: MACITENTAN
     Indication: Product used for unknown indication
     Dosage: UNK
     Route: 065
     Dates: start: 2022
  11. SPIRONOLACTONE [Suspect]
     Active Substance: SPIRONOLACTONE
     Indication: Product used for unknown indication
     Dosage: UNK
     Route: 065

REACTIONS (28)
  - Encephalopathy [Unknown]
  - Rectal haemorrhage [Unknown]
  - Diarrhoea haemorrhagic [Unknown]
  - Fluid retention [Unknown]
  - Blood pressure decreased [Unknown]
  - Lung disorder [Unknown]
  - Dyspnoea [Unknown]
  - Abdominal pain upper [Unknown]
  - Pulmonary oedema [Unknown]
  - Migraine [Unknown]
  - Pain in jaw [Unknown]
  - Headache [Unknown]
  - Epistaxis [Unknown]
  - Fall [Recovered/Resolved with Sequelae]
  - Balance disorder [Unknown]
  - Joint injury [Unknown]
  - Oxygen saturation decreased [Unknown]
  - Dizziness [Not Recovered/Not Resolved]
  - Diarrhoea [Not Recovered/Not Resolved]
  - Chromaturia [Unknown]
  - Dysuria [Unknown]
  - Weight increased [Unknown]
  - Abdominal distension [Unknown]
  - Nipple pain [Unknown]
  - Drug hypersensitivity [Unknown]
  - Cough [Unknown]
  - Face oedema [Unknown]
  - Oedema peripheral [Unknown]

NARRATIVE: CASE EVENT DATE: 20220101
